FAERS Safety Report 8512339-9 (Version None)
Quarter: 2012Q3

REPORT INFORMATION
  Report Type: 
  Country: None (occurrence: None)
  Receive Date: 20120716
  Receipt Date: 20120711
  Transmission Date: 20120928
  Serious: Yes (Other)
  Sender: FDA-Public Use
  Company Number: PHEH2012US009527

PATIENT
  Sex: Female

DRUGS (1)
  1. GILENYA [Suspect]
     Indication: MULTIPLE SCLEROSIS
     Dosage: 0.5 MG, QD
     Route: 048
     Dates: start: 20120502, end: 20120511

REACTIONS (11)
  - FATIGUE [None]
  - HYPERHIDROSIS [None]
  - CHEST PAIN [None]
  - ARRHYTHMIA [None]
  - ELECTROCARDIOGRAM ABNORMAL [None]
  - PALPITATIONS [None]
  - BLOOD PRESSURE INCREASED [None]
  - STRESS [None]
  - DYSPNOEA [None]
  - AGITATION [None]
  - DIZZINESS [None]
